FAERS Safety Report 8614846 (Version 4)
Quarter: 2015Q1

REPORT INFORMATION
  Report Type: Spontaneous
  Country: US (occurrence: US)
  Receive Date: 20120614
  Receipt Date: 20150212
  Transmission Date: 20150721
  Serious: Yes (Other)
  Sender: FDA-Public Use
  Company Number: US-ROCHE-701321

PATIENT
  Age: 15 Year
  Sex: Male
  Weight: 93.07 kg

DRUGS (7)
  1. ACCUTANE [Suspect]
     Active Substance: ISOTRETINOIN
     Route: 048
     Dates: start: 19951103, end: 19960109
  2. ACCUTANE [Suspect]
     Active Substance: ISOTRETINOIN
     Route: 065
     Dates: start: 19970822, end: 19980117
  3. ACCUTANE [Suspect]
     Active Substance: ISOTRETINOIN
     Dosage: 80 MG ANG 40 MG ALTERNATE DAYS
     Route: 065
     Dates: start: 19960112, end: 19960223
  4. ACCUTANE [Suspect]
     Active Substance: ISOTRETINOIN
     Route: 065
     Dates: start: 19960308, end: 19960608
  5. ACCUTANE [Suspect]
     Active Substance: ISOTRETINOIN
     Route: 065
     Dates: start: 20010508, end: 20010907
  6. IBUPROFEN. [Concomitant]
     Active Substance: IBUPROFEN
     Indication: HEADACHE
  7. ACCUTANE [Suspect]
     Active Substance: ISOTRETINOIN
     Indication: ACNE
     Route: 065
     Dates: start: 19940107, end: 19940530

REACTIONS (10)
  - Colitis ulcerative [Unknown]
  - Eczema asteatotic [Unknown]
  - Blood triglycerides increased [Unknown]
  - Blood cholesterol increased [Unknown]
  - Inflammatory bowel disease [Unknown]
  - Stress [Unknown]
  - Depression [Unknown]
  - Lip dry [Unknown]
  - Dry skin [Unknown]
  - Dermatitis [Unknown]

NARRATIVE: CASE EVENT DATE: 19940304
